FAERS Safety Report 10170851 (Version 3)
Quarter: 2018Q1

REPORT INFORMATION
  Report Type: Report from Study
  Country: US (occurrence: US)
  Receive Date: 20140514
  Receipt Date: 20180125
  Transmission Date: 20180508
  Serious: Yes (Hospitalization)
  Sender: FDA-Public Use
  Company Number: US-JNJFOC-20140407835

PATIENT
  Sex: Female
  Weight: 86.18 kg

DRUGS (4)
  1. METFORMIN [Concomitant]
     Active Substance: METFORMIN HYDROCHLORIDE
     Indication: DIABETES MELLITUS
     Route: 048
     Dates: start: 2013
  2. INVEGA SUSTENNA [Suspect]
     Active Substance: PALIPERIDONE PALMITATE
     Indication: DEPRESSION
     Route: 030
     Dates: start: 2011
  3. GLIPIZIDE. [Concomitant]
     Active Substance: GLIPIZIDE
     Indication: THROMBOSIS
     Route: 048
     Dates: start: 2013
  4. KLORCON [Concomitant]
     Indication: PRODUCT USED FOR UNKNOWN INDICATION
     Route: 048
     Dates: start: 2013

REACTIONS (22)
  - Hypoaesthesia [Unknown]
  - Weight increased [Unknown]
  - General physical health deterioration [Unknown]
  - Asthenia [Unknown]
  - Laziness [Unknown]
  - Memory impairment [Unknown]
  - Gallbladder disorder [Unknown]
  - Diabetes mellitus [Unknown]
  - Movement disorder [Unknown]
  - Fatigue [Unknown]
  - Hallucination [Unknown]
  - Skin discolouration [Unknown]
  - Gait inability [Unknown]
  - Pain in extremity [Unknown]
  - Peripheral swelling [Unknown]
  - Renal disorder [Unknown]
  - Dyspnoea [Unknown]
  - Off label use [Unknown]
  - Disturbance in attention [Unknown]
  - Pain [Unknown]
  - Depression [Unknown]
  - Product use in unapproved indication [Unknown]

NARRATIVE: CASE EVENT DATE: 2011
